FAERS Safety Report 7937812-3 (Version None)
Quarter: 2011Q4

REPORT INFORMATION
  Report Type: 
  Country: None (occurrence: None)
  Receive Date: 20111123
  Receipt Date: 20111121
  Transmission Date: 20120403
  Serious: Yes (Other)
  Sender: FDA-Public Use
  Company Number: HU-PFIZER INC-2011286329

PATIENT
  Age: 76 Year
  Sex: Female
  Weight: 62 kg

DRUGS (5)
  1. AMLODIPINE [Concomitant]
     Dosage: UNK
  2. ATORVASTATIN CALCIUM [Suspect]
     Indication: BLOOD CHOLESTEROL INCREASED
     Dosage: 40 MG, 1X/DAY
     Dates: start: 20110426
  3. FOSINOPRIL [Concomitant]
     Dosage: UNK
  4. ATORVASTATIN CALCIUM [Suspect]
     Dosage: 20 MG, 1X/DAY
     Dates: end: 20111031
  5. LETROX [Concomitant]
     Dosage: UNK
     Dates: start: 20110101

REACTIONS (5)
  - BACK PAIN [None]
  - ARTHRALGIA [None]
  - HEADACHE [None]
  - HYPERTHYROIDISM [None]
  - SLEEP DISORDER [None]
